FAERS Safety Report 4502410-0 (Version None)
Quarter: 2004Q4

REPORT INFORMATION
  Report Type: 
  Country: None (occurrence: None)
  Receive Date: 20041110
  Receipt Date: 20041104
  Transmission Date: 20050328
  Serious: Yes (Death)
  Sender: FDA-Public Use
  Company Number: 2004EU001940

PATIENT
  Age: 42 Year
  Sex: Male

DRUGS (4)
  1. PROGRAFT (TACROLIUMS) CAPSULE [Suspect]
     Indication: RENAL TRANSPLANT
     Dosage: 14.00 MG, D, ORAL
     Route: 048
     Dates: start: 20040813, end: 20040927
  2. IMURAN [Concomitant]
  3. METHYLPREDNISOLONE [Concomitant]
  4. PREDNISOLONE [Concomitant]

REACTIONS (4)
  - CYTOMEGALOVIRUS INFECTION [None]
  - DIARRHOEA [None]
  - RENAL IMPAIRMENT [None]
  - VOMITING [None]
